FAERS Safety Report 9475256 (Version 3)
Quarter: 2013Q4

REPORT INFORMATION
  Report Type: Spontaneous
  Country: DE (occurrence: DE)
  Receive Date: 20130825
  Receipt Date: 20131107
  Transmission Date: 20140711
  Serious: Yes (Other)
  Sender: FDA-Public Use
  Company Number: DE-PFIZER INC-2011062521

PATIENT
  Sex: Male

DRUGS (7)
  1. LYRICA [Suspect]
     Indication: PAIN
     Dosage: 200-225MG TWICE DAILY
     Route: 064
     Dates: start: 201011, end: 20110322
  2. LYRICA [Suspect]
     Indication: NEURALGIA
     Dosage: 600 MG, DAILY
  3. LYRICA [Suspect]
     Dosage: 125-150MG 2X/DAY
     Dates: end: 201103
  4. LYRICA [Suspect]
     Dosage: 150 MG, DAILY
     Route: 064
     Dates: start: 201103, end: 201104
  5. TARGIN [Suspect]
     Indication: NEURALGIA
     Dosage: 20 MG, 2X/DAY
     Route: 064
     Dates: start: 201011
  6. MYDOCALM [Suspect]
     Indication: PAIN
     Dosage: 50 MG, 3X/DAY
     Route: 064
     Dates: start: 201011, end: 20110314
  7. LIDOCAINE [Concomitant]
     Route: 064

REACTIONS (6)
  - Maternal exposure during pregnancy [Unknown]
  - Anaesthesia [Unknown]
  - Drug withdrawal syndrome neonatal [Unknown]
  - Crying [Unknown]
  - Restlessness [Unknown]
  - Muscle spasms [Unknown]
